FAERS Safety Report 15179374 (Version 5)
Quarter: 2018Q4

REPORT INFORMATION
  Report Type: Report from Study
  Country: DE (occurrence: DE)
  Receive Date: 20180723
  Receipt Date: 20181227
  Transmission Date: 20190204
  Serious: Yes (Other)
  Sender: FDA-Public Use
  Company Number: DE-BAXTER-2018BAX019824

PATIENT
  Age: 54 Year
  Sex: Female
  Weight: 82 kg

DRUGS (58)
  1. ENDOXAN 1G [Suspect]
     Active Substance: CYCLOPHOSPHAMIDE
     Dosage: 1440 MG, UNK
     Route: 041
  2. PREDNISONE. [Suspect]
     Active Substance: PREDNISONE
     Indication: PRODUCT USED FOR UNKNOWN INDICATION
     Dosage: 600 MG, UNK
     Route: 048
     Dates: start: 20180530, end: 20180604
  3. VINCRISTINE [Suspect]
     Active Substance: VINCRISTINE
     Dosage: 2 MG, (INFUSION RATE 2 ML/MIN FROM 15:15 TO 15:16)
     Route: 041
     Dates: start: 20180802, end: 20180802
  4. VINCRISTINE [Suspect]
     Active Substance: VINCRISTINE
     Dosage: 2 MG, UNK
     Route: 041
  5. VINCRISTINE [Suspect]
     Active Substance: VINCRISTINE
     Dosage: 2 MG, (INFUSION RATE 2 ML/MIN FROM 10:20 TO 10:21)
     Route: 041
     Dates: start: 20180912, end: 20180912
  6. RIXIMYO [Suspect]
     Active Substance: RITUXIMAB
     Indication: PRODUCT USED FOR UNKNOWN INDICATION
     Dosage: 741 MG, (INFUSION RATE 3.09 ML/MIN FROM 09:20 TO13:20)
     Route: 041
     Dates: start: 20180620, end: 20180620
  7. RIXIMYO [Suspect]
     Active Substance: RITUXIMAB
     Dosage: 721 MG, (INFUSION RATE 3.0 ML/MIN FROM 10:15 TO14:15)
     Route: 041
     Dates: start: 20180822, end: 20180822
  8. RIXIMYO [Suspect]
     Active Substance: RITUXIMAB
     Dosage: 722 MG, (INFUSION RATE 3.01 ML/MIN FROM 11:10 TO15:10)
     Route: 041
     Dates: start: 20180911, end: 20180911
  9. DOXORUBICIN [Suspect]
     Active Substance: DOXORUBICIN
     Dosage: 96 MG, UNK
     Route: 041
  10. DOXORUBICIN [Suspect]
     Active Substance: DOXORUBICIN
     Dosage: 96 MG, (INFUSION RATE 6.4 ML/MIN FROM 10:35 TO 13:50)
     Route: 041
     Dates: start: 20180912, end: 20180912
  11. ENDOXAN 1G [Suspect]
     Active Substance: CYCLOPHOSPHAMIDE
     Indication: PRODUCT USED FOR UNKNOWN INDICATION
     Dosage: 1480 MG, (INFUSION RATE 24.67 ML/MIN FROM 10:55 TO 11:55)
     Route: 041
     Dates: start: 20180621, end: 20180621
  12. ENDOXAN 1G [Suspect]
     Active Substance: CYCLOPHOSPHAMIDE
     Dosage: 1440 MG, (INFUSION RATE 24 ML/MIN FROM 14:15 TO 15:15)
     Route: 041
     Dates: start: 20180802, end: 20180802
  13. PREDNISONE. [Suspect]
     Active Substance: PREDNISONE
     Dosage: 400 MG, UNK
     Route: 048
     Dates: start: 20180822, end: 20180826
  14. VINCRISTINE [Suspect]
     Active Substance: VINCRISTINE
     Dosage: 2 MG, (INFUSION RATE 2 ML/MIN FROM 12:45 TO 12:46)
     Route: 041
     Dates: start: 20181025, end: 20181025
  15. DOXORUBICIN [Suspect]
     Active Substance: DOXORUBICIN
     Indication: DIFFUSE LARGE B-CELL LYMPHOMA
     Dosage: 99 MG, (INFUSION RATE 6.6 ML/MIN FROM 12:10 TO 12:25)
     Route: 041
     Dates: start: 20180621, end: 20180621
  16. DOXORUBICIN [Suspect]
     Active Substance: DOXORUBICIN
     Indication: PRODUCT USED FOR UNKNOWN INDICATION
     Dosage: 99 MG, INFUSION START TIME 12:10
     Route: 041
     Dates: start: 20180531, end: 20180531
  17. CLEMASTIN [Concomitant]
     Active Substance: CLEMASTINE
     Indication: PROPHYLAXIS
     Dosage: UNK
     Route: 042
     Dates: start: 20180530
  18. ENDOXAN 1G [Suspect]
     Active Substance: CYCLOPHOSPHAMIDE
     Dosage: 1140 MG, (INFUSION RATE 19 ML/MIN FROM 12:00 TO 13:00)
     Route: 041
     Dates: start: 20180823, end: 20180823
  19. PREDNISONE. [Suspect]
     Active Substance: PREDNISONE
     Indication: DIFFUSE LARGE B-CELL LYMPHOMA
     Dosage: 600 MG, UNK
     Route: 048
     Dates: start: 20180620, end: 20180625
  20. PREDNISONE. [Suspect]
     Active Substance: PREDNISONE
     Dosage: 500 MG, UNK
     Route: 048
     Dates: start: 20180911, end: 20180915
  21. DOXORUBICIN [Suspect]
     Active Substance: DOXORUBICIN
     Dosage: 96 MG, UNK
     Route: 041
  22. CIPROFLOXACIN. [Concomitant]
     Active Substance: CIPROFLOXACIN
     Indication: PRODUCT USED FOR UNKNOWN INDICATION
     Dosage: UNK
     Route: 048
     Dates: start: 20180824
  23. PREDNISONE. [Suspect]
     Active Substance: PREDNISONE
     Dosage: 400 MG, UNK
     Route: 048
  24. VINCRISTINE [Suspect]
     Active Substance: VINCRISTINE
     Dosage: 2 MG, UNK
     Route: 041
  25. RIXIMYO [Suspect]
     Active Substance: RITUXIMAB
     Dosage: 722 MG, UNK
     Route: 041
  26. DOXORUBICIN [Suspect]
     Active Substance: DOXORUBICIN
     Dosage: 96 MG, INFUSION RATE 6.4 ML/MIN FROM 12:45 TO 13:00)
     Route: 041
     Dates: start: 20180712, end: 20180712
  27. DEXAMETHASONE. [Concomitant]
     Active Substance: DEXAMETHASONE
     Indication: PROPHYLAXIS
     Dosage: UNK
     Route: 042
     Dates: start: 20180531
  28. PARACETAMOL [Concomitant]
     Active Substance: ACETAMINOPHEN
     Indication: PROPHYLAXIS
     Dosage: UNK
     Route: 048
     Dates: start: 20180530
  29. CIPROFLOXACIN. [Concomitant]
     Active Substance: CIPROFLOXACIN
     Indication: PROPHYLAXIS
     Dosage: UNK
     Route: 048
     Dates: start: 20180611, end: 20180615
  30. ENDOXAN 1G [Suspect]
     Active Substance: CYCLOPHOSPHAMIDE
     Indication: DIFFUSE LARGE B-CELL LYMPHOMA
     Dosage: 1480 MG, (INFUSION RATE 24.67 ML/MIN FROM 10:55 TO 11:55)
     Route: 041
     Dates: start: 20180531, end: 20180531
  31. ENDOXAN 1G [Suspect]
     Active Substance: CYCLOPHOSPHAMIDE
     Dosage: 1440 MG, (INFUSION RATE 24.30 ML/MIN FROM 10:30 TO 12:30)
     Route: 041
     Dates: start: 20180712, end: 20180712
  32. ENDOXAN 1G [Suspect]
     Active Substance: CYCLOPHOSPHAMIDE
     Dosage: 1440 MG, UNK
     Route: 041
  33. ENDOXAN 1G [Suspect]
     Active Substance: CYCLOPHOSPHAMIDE
     Dosage: 1440 MG, (INFUSION RATE 24 ML/MIN FROM 11:45 TO 12:45)
     Route: 041
     Dates: start: 20181025, end: 20181025
  34. PREDNISONE. [Suspect]
     Active Substance: PREDNISONE
     Dosage: 600 MG, UNK
     Route: 048
     Dates: start: 20180711, end: 20180716
  35. PREDNISONE. [Suspect]
     Active Substance: PREDNISONE
     Dosage: 400 MG, UNK
     Route: 048
     Dates: start: 20181002
  36. VINCRISTINE [Suspect]
     Active Substance: VINCRISTINE
     Indication: DIFFUSE LARGE B-CELL LYMPHOMA
     Dosage: 2 MG, (INFUSION RATE 2 ML/MIN FROM 11:55 TO 11:55)
     Route: 041
     Dates: start: 20180621, end: 20180621
  37. VINCRISTINE [Suspect]
     Active Substance: VINCRISTINE
     Dosage: 2 MG, (INFUSION RATE 2 ML/MIN FROM 11:50 TO 11:51)
     Route: 041
     Dates: start: 20180823, end: 20180823
  38. RIXIMYO [Suspect]
     Active Substance: RITUXIMAB
     Dosage: 722 MG, (INFUSION RATE 3.0 ML/MIN FROM 10:15 TO14:15)
     Route: 041
     Dates: start: 20181024
  39. DOXORUBICIN [Suspect]
     Active Substance: DOXORUBICIN
     Dosage: 96 MG, (INFUSION RATE 6.4 ML/MIN FROM 15:30 TO 15:45)
     Route: 041
     Dates: start: 20180802, end: 20180802
  40. NEULASTA [Concomitant]
     Active Substance: PEGFILGRASTIM
     Indication: PROPHYLAXIS
     Dosage: UNK
     Route: 058
     Dates: start: 20180620
  41. COTRIM FORTE [Concomitant]
     Active Substance: SULFAMETHOXAZOLE\TRIMETHOPRIM
     Indication: PROPHYLAXIS
     Dosage: UNK
     Route: 048
     Dates: start: 20180530
  42. PREDNISONE. [Suspect]
     Active Substance: PREDNISONE
     Dosage: 600 MG, UNK
     Route: 048
     Dates: start: 20180801, end: 20180806
  43. VINCRISTINE [Suspect]
     Active Substance: VINCRISTINE
     Indication: PRODUCT USED FOR UNKNOWN INDICATION
     Dosage: 2 MG, INFUSION START TIME 11:55
     Route: 041
     Dates: start: 20180531, end: 20180531
  44. RIXIMYO [Suspect]
     Active Substance: RITUXIMAB
     Indication: DIFFUSE LARGE B-CELL LYMPHOMA
     Dosage: 741 MG, (INFUSION RATE 2.1 ML/MIN FROM 09:30 TO15:30)
     Route: 041
     Dates: start: 20180530, end: 20180530
  45. MESNA. [Concomitant]
     Active Substance: MESNA
     Indication: PROPHYLAXIS
     Dosage: UNK
     Route: 042
     Dates: start: 20180531
  46. ENDOXAN 1G [Suspect]
     Active Substance: CYCLOPHOSPHAMIDE
     Dosage: 1440 MG, (INFUSION RATE 24 ML/MIN FROM 09:20 TO 10:20)
     Route: 041
     Dates: start: 20180912, end: 20180912
  47. ENDOXAN 1G [Suspect]
     Active Substance: CYCLOPHOSPHAMIDE
     Dosage: 1440 MG, (INFUSION RATE 24 ML/MIN FROM 09:20 TO 10:20)
     Route: 041
     Dates: start: 20181004, end: 20181004
  48. VINCRISTINE [Suspect]
     Active Substance: VINCRISTINE
     Dosage: 2 MG, (INFUSION RATE 2 ML/MIN FROM 12:30 TO 12:31)
     Route: 041
     Dates: start: 20180712, end: 20180712
  49. RIXIMYO [Suspect]
     Active Substance: RITUXIMAB
     Dosage: 721 MG, (INFUSION RATE 3.0 ML/MIN FROM 09:10 TO13:10)
     Route: 041
     Dates: start: 20180711, end: 20180711
  50. RIXIMYO [Suspect]
     Active Substance: RITUXIMAB
     Dosage: 722 MG, (INFUSION RATE 3.0 ML/MIN FROM 09:50 TO13:50)
     Route: 041
     Dates: start: 20181002, end: 20181002
  51. DOXORUBICIN [Suspect]
     Active Substance: DOXORUBICIN
     Dosage: 96 MG, (INFUSION RATE 6.4 ML/MIN FROM 13:30 TO 13:45)
     Route: 041
     Dates: start: 20180823, end: 20180823
  52. DOXORUBICIN [Suspect]
     Active Substance: DOXORUBICIN
     Dosage: 96 MG, (INFUSION RATE 6.4 ML/MIN FROM 10:35 TO 10:50)
     Route: 041
     Dates: start: 20181004, end: 20181004
  53. DOXORUBICIN [Suspect]
     Active Substance: DOXORUBICIN
     Dosage: 96 MG, (INFUSION RATE 6.4 ML/MIN FROM 13:00 TO 13:15)
     Route: 041
     Dates: start: 20181025, end: 20181025
  54. VINCRISTINE [Suspect]
     Active Substance: VINCRISTINE
     Dosage: 2 MG, (INFUSION RATE 2 ML/MIN FROM 09:20 TO 09:21)
     Route: 041
     Dates: start: 20181004, end: 20181004
  55. RIXIMYO [Suspect]
     Active Substance: RITUXIMAB
     Dosage: 721 MG, (INFUSION RATE 3.0 ML/MIN FROM 10:15 TO14:15)
     Route: 041
     Dates: start: 20180801, end: 20180801
  56. PALONOSETRON. [Concomitant]
     Active Substance: PALONOSETRON HYDROCHLORIDE
     Indication: PRODUCT USED FOR UNKNOWN INDICATION
     Dosage: UNK
     Route: 042
     Dates: start: 20180531
  57. RANITIDIN [Concomitant]
     Active Substance: RANITIDINE HYDROCHLORIDE
     Indication: PROPHYLAXIS
     Dosage: UNK
     Route: 042
     Dates: start: 20180530
  58. ACICLOVIR [Concomitant]
     Active Substance: ACYCLOVIR
     Indication: PROPHYLAXIS
     Dosage: UNK
     Route: 048
     Dates: start: 20180530

REACTIONS (4)
  - Leukopenia [Recovered/Resolved]
  - Anaemia [Not Recovered/Not Resolved]
  - Neutropenia [Recovered/Resolved]
  - Portal hypertension [Not Recovered/Not Resolved]

NARRATIVE: CASE EVENT DATE: 20180530
